FAERS Safety Report 8156057-8 (Version None)
Quarter: 2012Q1

REPORT INFORMATION
  Report Type: 
  Country: None (occurrence: None)
  Receive Date: 20120221
  Receipt Date: 20120221
  Transmission Date: 20120608
  Serious: Yes (Death)
  Sender: FDA-Public Use
  Company Number: None

PATIENT
  Age: 25 Year
  Sex: Female
  Weight: 76.7 kg

DRUGS (21)
  1. LEVOFLOXACIN [Concomitant]
  2. FLUCONAZOLE [Concomitant]
  3. GENGRAF [Concomitant]
  4. OMEPRAZOLE [Concomitant]
  5. LORAZEPAM [Concomitant]
  6. BUDESONIDE [Concomitant]
  7. METOPROLOL TARTRATE [Concomitant]
  8. URSODIOL [Concomitant]
  9. MYCOPHENOLATE MOFETIL [Concomitant]
  10. VALACYCLOVIR [Concomitant]
  11. PENTAMIDINE [Concomitant]
  12. NORETHINDRONE ACETATE [Concomitant]
  13. MIRTAZAPINE [Concomitant]
  14. ERGOCALCIFEROL (VITAMIN D2) [Concomitant]
  15. QUETIAPINE [Concomitant]
  16. OXYCODONE HCL [Concomitant]
  17. OXYCODONE HCL [Concomitant]
  18. RESTASIS [Suspect]
     Indication: PROPHYLAXIS
     Dosage: 1GTT BOTH EYES BID
     Dates: start: 20120209
  19. RESTASIS [Suspect]
     Indication: GRAFT VERSUS HOST DISEASE
     Dosage: 1GTT BOTH EYES BID
     Dates: start: 20120209
  20. MG-PLUS-PROTEIN [Concomitant]
  21. ONDANSETRON [Concomitant]

REACTIONS (6)
  - ACUTE RESPIRATORY DISTRESS SYNDROME [None]
  - CARDIAC ARREST [None]
  - HYPERKALAEMIA [None]
  - ACIDOSIS [None]
  - RESPIRATORY FAILURE [None]
  - BRADYCARDIA [None]
